FAERS Safety Report 12832388 (Version 1)
Quarter: 2016Q4

REPORT INFORMATION
  Report Type: Spontaneous
  Country: US (occurrence: US)
  Receive Date: 20161010
  Receipt Date: 20161010
  Transmission Date: 20170207
  Serious: Yes (Death)
  Sender: FDA-Public Use
  Company Number: US-JNJFOC-20161003542

PATIENT
  Age: 85 Year
  Sex: Female
  Weight: 65.77 kg

DRUGS (1)
  1. LISTERINE ORIGINAL [Suspect]
     Active Substance: EUCALYPTOL\MENTHOL\METHYL SALICYLATE\THYMOL
     Indication: DANDRUFF
     Dosage: ENOUGH TO SOAK A COTTON BALL WHENEVER SHE NEEDED IT
     Route: 065

REACTIONS (4)
  - Death [Fatal]
  - Intentional product use issue [Unknown]
  - Cerebrovascular accident [Unknown]
  - Intentional product misuse [Unknown]
